FAERS Safety Report 9382050 (Version 2)
Quarter: 2013Q4

REPORT INFORMATION
  Report Type: Spontaneous
  Country: US (occurrence: US)
  Receive Date: 20130703
  Receipt Date: 20131003
  Transmission Date: 20140711
  Serious: Yes (Other)
  Sender: FDA-Public Use
  Company Number: US-TEVA-416345USA

PATIENT
  Age: 35 Year
  Sex: Female
  Weight: 67.19 kg

DRUGS (2)
  1. PARAGARD 380A [Suspect]
     Indication: CONTRACEPTION
     Route: 015
  2. WELLBUTRIN [Concomitant]
     Indication: ANXIETY
     Dosage: 150 MILLIGRAM DAILY;
     Route: 048

REACTIONS (5)
  - Device dislocation [Recovered/Resolved]
  - Nausea [Recovered/Resolved]
  - Anorectal discomfort [Recovered/Resolved]
  - Abdominal pain [Recovered/Resolved]
  - Metrorrhagia [Not Recovered/Not Resolved]
